FAERS Safety Report 12736171 (Version 1)
Quarter: 2016Q3

REPORT INFORMATION
  Report Type: Spontaneous
  Country: DE (occurrence: DE)
  Receive Date: 20160912
  Receipt Date: 20160912
  Transmission Date: 20161109
  Serious: Yes (Other)
  Sender: FDA-Public Use
  Company Number: DE-BRISTOL-MYERS SQUIBB COMPANY-BMS-2016-040497

PATIENT
  Age: 77 Year
  Sex: Female

DRUGS (2)
  1. LYSODREN [Suspect]
     Active Substance: MITOTANE
     Dosage: 3 G, UNK
     Route: 065
  2. LYSODREN [Suspect]
     Active Substance: MITOTANE
     Indication: NEOPLASM MALIGNANT
     Dosage: 3 G, UNK
     Route: 065
     Dates: start: 20160217

REACTIONS (5)
  - Aspartate aminotransferase increased [Recovered/Resolved]
  - Cholestatic liver injury [Unknown]
  - Gamma-glutamyltransferase increased [Not Recovered/Not Resolved]
  - Alanine aminotransferase increased [Recovered/Resolved]
  - Blood alkaline phosphatase increased [Unknown]

NARRATIVE: CASE EVENT DATE: 2016
